FAERS Safety Report 23057558 (Version 2)
Quarter: 2023Q4

REPORT INFORMATION
  Report Type: Spontaneous
  Country: US (occurrence: US)
  Receive Date: 20231012
  Receipt Date: 20231019
  Transmission Date: 20240109
  Serious: Yes (Hospitalization, Other)
  Sender: FDA-Public Use
  Company Number: US-SA-2023SA303190

PATIENT
  Sex: Male

DRUGS (3)
  1. LEFLUNOMIDE [Suspect]
     Active Substance: LEFLUNOMIDE
     Indication: Rheumatoid arthritis
     Dosage: SUDDEN INCREASE IN HIS RA IMMUNOSUPPRESSANTS
  2. METHOTREXATE [Suspect]
     Active Substance: METHOTREXATE
     Indication: Rheumatoid arthritis
     Dosage: SUDDEN INCREASE IN HIS RA IMMUNOSUPPRESSANTS
  3. PREDNISONE [Suspect]
     Active Substance: PREDNISONE
     Indication: Rheumatoid arthritis
     Dosage: SUDDEN INCREASE IN HIS RA IMMUNOSUPPRESSANTS

REACTIONS (2)
  - Pneumonia cryptococcal [Recovering/Resolving]
  - Pneumonia klebsiella [Unknown]
